FAERS Safety Report 5826833-2 (Version None)
Quarter: 2008Q3

REPORT INFORMATION
  Report Type: 
  Country: None (occurrence: None)
  Receive Date: 20080729
  Receipt Date: 20080729
  Transmission Date: 20090109
  Serious: Yes (Hospitalization)
  Sender: FDA-Public Use
  Company Number: None

PATIENT
  Sex: Male
  Weight: 80 kg

DRUGS (7)
  1. BEVACIZUMAB (GENENTECH) [Suspect]
     Indication: ANAPLASTIC ASTROCYTOMA
     Dosage: 10MG/KG IV Q 2 WEEKS
     Route: 042
  2. ERLOTINIB (GENENTECH) [Suspect]
     Indication: ANAPLASTIC ASTROCYTOMA
     Dosage: 200MG PO DAILY
     Route: 048
  3. CLEOCIN GEL [Concomitant]
  4. MINOCYCLINE HCL [Concomitant]
  5. KEPPRA [Concomitant]
  6. CIPRO [Concomitant]
  7. ZOFRAN [Concomitant]

REACTIONS (2)
  - NEPHROLITHIASIS [None]
  - URETERIC OBSTRUCTION [None]
